FAERS Safety Report 11341682 (Version 1)
Quarter: 2015Q3

REPORT INFORMATION
  Report Type: Spontaneous
  Country: US (occurrence: None)
  Receive Date: 20150629
  Receipt Date: 20150629
  Transmission Date: 20151125
  Serious: No
  Sender: FDA-Public Use
  Company Number: A-US2014-107438

PATIENT
  Age: 64 Year
  Sex: Female

DRUGS (3)
  1. COUMADIN (WARDARIN SODIUM) [Concomitant]
  2. VENTAVIS [Suspect]
     Active Substance: ILOPROST
     Indication: PULMONARY ARTERIAL HYPERTENSION
     Dosage: 6-9X DAILY
     Route: 055
     Dates: start: 20140708
  3. OPSUMIT [Suspect]
     Active Substance: MACITENTAN
     Indication: PULMONARY ARTERIAL HYPERTENSION
     Route: 048
     Dates: start: 20140602

REACTIONS (1)
  - Anaemia [None]
